FAERS Safety Report 8021794 (Version 2)
Quarter: 2013Q1

REPORT INFORMATION
  Report Type: Spontaneous
  Country: DE (occurrence: DE)
  Receive Date: 20110705
  Receipt Date: 20130329
  Transmission Date: 20140127
  Serious: Yes (Hospitalization, Other)
  Sender: FDA-Public Use
  Company Number: PHHY2011DE55955

PATIENT
  Age: 59 Year
  Sex: Male
  Weight: 98 kg

DRUGS (2)
  1. TRAMADOL [Suspect]
     Dosage: 100 MG, TID
     Dates: start: 200907, end: 201004
  2. THIAMAZOLE [Concomitant]
     Dosage: 20 DF, PRN
     Dates: start: 200907

REACTIONS (6)
  - Gene mutation [Unknown]
  - Muscular weakness [Recovered/Resolved]
  - Dyspnoea exertional [Recovered/Resolved]
  - Vertigo [Recovered/Resolved]
  - Pain [Unknown]
  - Dizziness [Recovered/Resolved]
